FAERS Safety Report 5491288-7 (Version None)
Quarter: 2007Q4

REPORT INFORMATION
  Report Type: 
  Country: None (occurrence: None)
  Receive Date: 20071017
  Receipt Date: 20071006
  Transmission Date: 20080405
  Serious: Yes (Hospitalization, Other)
  Sender: FDA-Public Use
  Company Number: 2007BI021335

PATIENT
  Sex: Female

DRUGS (2)
  1. AVONEX [Suspect]
     Indication: MULTIPLE SCLEROSIS
     Dosage: 30 UG; QW; IM
     Route: 030
     Dates: start: 19980501
  2. BISOBETA [Concomitant]

REACTIONS (4)
  - ACOUSTIC NEUROMA [None]
  - BASAL CELL CARCINOMA [None]
  - THYROID CYST [None]
  - TINNITUS [None]
